FAERS Safety Report 5620249-X (Version None)
Quarter: 2008Q1

REPORT INFORMATION
  Report Type: 
  Country: None (occurrence: None)
  Receive Date: 20080208
  Receipt Date: 20080206
  Transmission Date: 20080703
  Serious: Yes (Hospitalization)
  Sender: FDA-Public Use
  Company Number: B0504143A

PATIENT
  Age: 71 Year
  Sex: Male
  Weight: 75 kg

DRUGS (3)
  1. PAXIL [Suspect]
     Indication: DEPRESSION
     Dosage: 40MG PER DAY
     Route: 048
  2. PAXIL [Suspect]
     Dosage: 10MG PER DAY
     Route: 048
     Dates: start: 20070802, end: 20071215
  3. GLYSENNID [Concomitant]
     Indication: CONSTIPATION
     Dosage: 24MG TWICE PER DAY
     Route: 048
     Dates: start: 20070802

REACTIONS (8)
  - ANOREXIA [None]
  - CLONIC CONVULSION [None]
  - COGNITIVE DISORDER [None]
  - CONVULSION [None]
  - DEPRESSED LEVEL OF CONSCIOUSNESS [None]
  - FALL [None]
  - HYPONATRAEMIA [None]
  - JOINT ANKYLOSIS [None]
